FAERS Safety Report 5970753-X (Version None)
Quarter: 2008Q4

REPORT INFORMATION
  Report Type: 
  Country: None (occurrence: None)
  Receive Date: 20081126
  Receipt Date: 20081111
  Transmission Date: 20090506
  Serious: No
  Sender: FDA-Public Use
  Company Number: US-ABBOTT-08P-163-0487245-00

PATIENT
  Sex: Female
  Weight: 58.112 kg

DRUGS (3)
  1. SIMCOR [Suspect]
     Indication: BLOOD CHOLESTEROL
     Dates: start: 20081028
  2. WARFARIN SODIUM [Concomitant]
     Indication: CARDIAC PACEMAKER INSERTION
  3. RALOXIFENE HCL [Concomitant]
     Indication: BONE DISORDER

REACTIONS (3)
  - ERYTHEMA [None]
  - FEELING HOT [None]
  - FLUSHING [None]
